FAERS Safety Report 8489427-9 (Version None)
Quarter: 2012Q3

REPORT INFORMATION
  Report Type: 
  Country: None (occurrence: None)
  Receive Date: 20120705
  Receipt Date: 20120627
  Transmission Date: 20120928
  Serious: Yes (Hospitalization)
  Sender: FDA-Public Use
  Company Number: IT-UCBSA-060681

PATIENT
  Age: 66 Year
  Sex: Female

DRUGS (3)
  1. PHENOBARBITAL TAB [Suspect]
     Indication: CONVULSION PROPHYLAXIS
     Dosage: DAILY DOSE 100 MG, 20 TABLETS
     Route: 048
     Dates: start: 20120508, end: 20120530
  2. KEPPRA [Suspect]
     Indication: CONVULSION PROPHYLAXIS
     Dosage: DAILY DOSE 1000 MG, 60 TABLETS
     Route: 048
     Dates: start: 20120508, end: 20120527
  3. FUROSEMIDE [Concomitant]
     Dosage: DAILY DOSE 50 MG
     Route: 048

REACTIONS (1)
  - TOXIC SKIN ERUPTION [None]
